FAERS Safety Report 6226201-8 (Version None)
Quarter: 2009Q2

REPORT INFORMATION
  Report Type: 
  Country: None (occurrence: None)
  Receive Date: 20090612
  Receipt Date: 20090522
  Transmission Date: 20091009
  Serious: Yes (Other)
  Sender: FDA-Public Use
  Company Number: US-ABBOTT-09P-163-0572700-00

PATIENT
  Sex: Female
  Weight: 52.664 kg

DRUGS (1)
  1. HUMIRA [Suspect]
     Indication: IMMUNE SYSTEM DISORDER
     Route: 058
     Dates: start: 20060801

REACTIONS (3)
  - DRUG DOSE OMISSION [None]
  - HEPATITIS C [None]
  - INAPPROPRIATE SCHEDULE OF DRUG ADMINISTRATION [None]
